FAERS Safety Report 4317627-8 (Version None)
Quarter: 2004Q1

REPORT INFORMATION
  Report Type: 
  Country: None (occurrence: None)
  Receive Date: 20040315
  Receipt Date: 20031121
  Transmission Date: 20041129
  Serious: Yes (Hospitalization, Disabling)
  Sender: FDA-Public Use
  Company Number: FR-BRISTOL-MYERS SQUIBB COMPANY-12442588

PATIENT
  Age: 53 Year
  Sex: Male
  Weight: 70 kg

DRUGS (10)
  1. SUSTIVA [Suspect]
     Indication: HIV INFECTION
     Route: 048
     Dates: start: 20010906
  2. VIDEX [Suspect]
     Indication: HIV INFECTION
     Route: 048
     Dates: start: 20010906, end: 20030620
  3. COVIRACIL [Suspect]
     Indication: HIV INFECTION
     Dosage: THERAPY INTERRUPTED 20-JUN-2003 TO 10-SEP-2003
     Dates: start: 20010906
  4. INTERFERON [Suspect]
     Indication: HEPATITIS C
     Dates: start: 20020606, end: 20030515
  5. REBETOL [Suspect]
     Indication: HEPATITIS C
     Dates: start: 20020606, end: 20030515
  6. DAONIL [Concomitant]
     Dates: start: 19990120
  7. LORAZEPAM [Concomitant]
     Dates: start: 20010607
  8. COMBIVIR [Concomitant]
     Indication: HIV INFECTION
     Dates: start: 20030620, end: 20030910
  9. IMOVANE [Concomitant]
  10. ZIAGEN [Concomitant]
     Dates: start: 20030721

REACTIONS (6)
  - LEUKOPENIA [None]
  - NEUROPATHY PERIPHERAL [None]
  - PAIN IN EXTREMITY [None]
  - PANCYTOPENIA [None]
  - TESTICULAR SWELLING [None]
  - WEIGHT DECREASED [None]
